FAERS Safety Report 5029080-X (Version None)
Quarter: 2006Q2

REPORT INFORMATION
  Report Type: 
  Country: None (occurrence: None)
  Receive Date: 20060613
  Receipt Date: 20060530
  Transmission Date: 20061013
  Serious: Yes (Hospitalization)
  Sender: FDA-Public Use
  Company Number: 225967

PATIENT
  Age: 63 Year
  Sex: Female
  Weight: 60 kg

DRUGS (9)
  1. AVASTIN [Suspect]
     Indication: COLORECTAL CANCER METASTATIC
     Dosage: 458 MG, Q3W, INTRAVENOUS
     Route: 042
     Dates: start: 20060104
  2. CAPECITABINE(CAPECITABINE) [Suspect]
     Indication: COLORECTAL CANCER METASTATIC
     Dosage: 1560 MG, BID, ORAL
     Route: 048
     Dates: start: 20051115
  3. OXALIPLATIN           (OXALIPLATIN) [Suspect]
     Indication: COLORECTAL CANCER METASTATIC
     Dosage: 203 MG, Q3W, INTRAVENOUS
     Route: 042
     Dates: start: 20051116
  4. ALTACE [Concomitant]
  5. ASA EC (ASPIRIN) [Concomitant]
  6. IMODIUM [Concomitant]
  7. PROCHLORPERAZINE [Concomitant]
  8. EPREX [Concomitant]
  9. SLOW-K [Concomitant]

REACTIONS (5)
  - DEHYDRATION [None]
  - DIARRHOEA [None]
  - INTESTINAL OBSTRUCTION [None]
  - ORAL INTAKE REDUCED [None]
  - VOMITING [None]
